FAERS Safety Report 8249184-8 (Version None)
Quarter: 2012Q1

REPORT INFORMATION
  Report Type: 
  Country: None (occurrence: None)
  Receive Date: 20120328
  Receipt Date: 20120313
  Transmission Date: 20120608
  Serious: Yes (Disabling, Other)
  Sender: FDA-Public Use
  Company Number: 2010MA000212

PATIENT
  Sex: Female
  Weight: 71.6683 kg

DRUGS (64)
  1. AMOXICILLIN [Concomitant]
  2. CEPHALEXIN [Concomitant]
  3. CHERATUSSIN [Concomitant]
  4. DONNATOL [Concomitant]
  5. DIFLUCAN [Concomitant]
  6. NABUMETONE [Concomitant]
  7. OXYCODONE HCL AND ACETAMINOPHEN [Concomitant]
  8. SULFAMETHOXAZOLE AND TRIMETHOPRIM [Concomitant]
  9. TAMIFLU [Concomitant]
  10. TIZANIDINE HCL [Concomitant]
  11. TUSSIONEX [Concomitant]
  12. ACIDOPHILUS [Concomitant]
  13. AVELOX [Concomitant]
  14. DIPHENOXYLATE HCL + ATROPINE SULFATE [Concomitant]
  15. ERYTHROMYCIN [Concomitant]
  16. ERYTHROMYCIN ES [Concomitant]
  17. HYOSCYAMINE [Concomitant]
  18. MECLIZINE [Concomitant]
  19. PROTONIX [Concomitant]
  20. POTASSIUM [Concomitant]
  21. METOCLOPRAMIDE [Suspect]
     Indication: IMPAIRED GASTRIC EMPTYING
     Dosage: 10 MG;BID
     Dates: start: 20021202, end: 20090217
  22. AMOXICILLIN AND CLAVULANATE POTASSIUM [Concomitant]
  23. DIAZEPAM [Concomitant]
  24. FLUVOXAMINE MALEATE [Concomitant]
  25. NEURONTIN [Concomitant]
  26. GAS-X [Concomitant]
  27. LORAZEPAM [Concomitant]
  28. METRONIDAZOLE [Concomitant]
  29. PHENERGAN HCL [Concomitant]
  30. SPECTRACEF [Concomitant]
  31. ZOLOFT [Concomitant]
  32. AMITRIIPTYLINE [Concomitant]
  33. ATIVAN [Concomitant]
  34. IPRATROPIUM [Concomitant]
  35. LIDOCAINE [Concomitant]
  36. MINOCYCLINE HCL [Concomitant]
  37. PROPOXYPHENE NAPSYLATE [Concomitant]
  38. SUDAFED 12 HOUR [Concomitant]
  39. TUSSIDEN DM [Concomitant]
  40. ZELNORM [Concomitant]
  41. AMI-TEX [Concomitant]
  42. CARISOPRODOL [Concomitant]
  43. CEFUROXIME [Concomitant]
  44. FUROSEMIDE [Concomitant]
  45. IOPHEN DM NR [Concomitant]
  46. LIDOCAINE/PRILOCAINE [Concomitant]
  47. BENTYL [Concomitant]
  48. BETHANECHOL [Concomitant]
  49. BUSPIRONE [Concomitant]
  50. CHLORDIAZEPOXIDE HCL W/ CLIDINIUM BROMIDE [Concomitant]
  51. CLARITHROMYCIN [Concomitant]
  52. DICYCLOMINE [Concomitant]
  53. ALBUTEROL [Concomitant]
  54. FLUOXETINE [Concomitant]
  55. NAPROXEN [Concomitant]
  56. PROMETHAZINE [Concomitant]
  57. SKELAXIN [Concomitant]
  58. TRAMADOL HCL [Concomitant]
  59. VITAMIN B COMPLEX CAP [Concomitant]
  60. CATAFLAM [Concomitant]
  61. TEBAMIDE [Concomitant]
  62. AMITIZA [Concomitant]
  63. DICLOFENAC SODIUM [Concomitant]
  64. WELLBUTRIN XL [Concomitant]

REACTIONS (30)
  - PAIN [None]
  - DYSPEPSIA [None]
  - ABDOMINAL PAIN UPPER [None]
  - GASTRITIS [None]
  - ACTIVITIES OF DAILY LIVING IMPAIRED [None]
  - MUSCLE TWITCHING [None]
  - NERVOUS SYSTEM DISORDER [None]
  - RESTLESSNESS [None]
  - DIARRHOEA [None]
  - NAUSEA [None]
  - DEFORMITY [None]
  - PARAESTHESIA [None]
  - BARRETT'S OESOPHAGUS [None]
  - AKATHISIA [None]
  - MENTAL DISORDER [None]
  - CONSTIPATION [None]
  - WEIGHT INCREASED [None]
  - DECREASED APPETITE [None]
  - HIATUS HERNIA [None]
  - ABDOMINAL DISTENSION [None]
  - EXTRAPYRAMIDAL DISORDER [None]
  - EARLY SATIETY [None]
  - IRRITABLE BOWEL SYNDROME [None]
  - IMPAIRED GASTRIC EMPTYING [None]
  - FIBROMYALGIA [None]
  - FLATULENCE [None]
  - ABDOMINAL PAIN [None]
  - WEIGHT DECREASED [None]
  - GASTROOESOPHAGEAL REFLUX DISEASE [None]
  - ABDOMINAL RIGIDITY [None]
